FAERS Safety Report 6502616-5 (Version None)
Quarter: 2009Q4

REPORT INFORMATION
  Report Type: 
  Country: None (occurrence: None)
  Receive Date: 20091127
  Receipt Date: 20090831
  Transmission Date: 20100525
  Serious: Yes (Other)
  Sender: FDA-Public Use
  Company Number: 001587

PATIENT
  Sex: Female

DRUGS (5)
  1. LACOSAMIDE [Suspect]
     Dosage: (150 MG BID ORAL)
     Route: 048
     Dates: start: 20090622
  2. TRILEPTAL [Concomitant]
  3. NEURONTIN [Concomitant]
  4. KLONOPIN [Concomitant]
  5. CHOLESTYRAMINE [Concomitant]

REACTIONS (2)
  - DIPLOPIA [None]
  - GAIT DISTURBANCE [None]
